FAERS Safety Report 7723894-0 (Version None)
Quarter: 2011Q3

REPORT INFORMATION
  Report Type: 
  Country: None (occurrence: None)
  Receive Date: 20110901
  Receipt Date: 20110822
  Transmission Date: 20111222
  Serious: Yes (Death)
  Sender: FDA-Public Use
  Company Number: US-ACTELION-A-NJ2011-53071

PATIENT

DRUGS (4)
  1. TRACLEER [Suspect]
     Indication: PULMONARY ARTERIAL HYPERTENSION
     Dosage: UNK
     Route: 048
     Dates: start: 20021209
  2. VIAGRA [Concomitant]
  3. CALCIUM CHANNEL BLOCKERS [Concomitant]
  4. OXYGEN [Concomitant]

REACTIONS (1)
  - DEATH [None]
